FAERS Safety Report 6937432-3 (Version None)
Quarter: 2010Q3

REPORT INFORMATION
  Report Type: 
  Country: None (occurrence: None)
  Receive Date: 20100823
  Receipt Date: 20100816
  Transmission Date: 20110219
  Serious: Yes (Other)
  Sender: FDA-Public Use
  Company Number: US-ROCHE-631051

PATIENT
  Sex: Female
  Weight: 3.5 kg

DRUGS (7)
  1. RIBAVIRIN [Suspect]
     Indication: PRODUCT USED FOR UNKNOWN INDICATION
     Route: 064
  2. PEGINTERFERON ALFA-2A [Suspect]
     Indication: PRODUCT USED FOR UNKNOWN INDICATION
     Route: 064
  3. METFORMIN [Concomitant]
     Indication: DIABETES MELLITUS
     Dates: start: 20080701, end: 20090301
  4. GLYBURIDE [Concomitant]
     Indication: DIABETES MELLITUS
     Dosage: FROM WEEK 22-28
     Dates: start: 20090420, end: 20090601
  5. GLYBURIDE [Concomitant]
     Dosage: WEEK 28-30 WEEKS
     Dates: start: 20090601, end: 20090701
  6. GLYBURIDE [Concomitant]
     Dosage: 5 MG AND 7.5 MG QH (30 WEEKS-NO STOP DATE0
     Dates: start: 20090701
  7. PRENATAL VITAMINS [Concomitant]

REACTIONS (3)
  - BLOOD TEST ABNORMAL [None]
  - OVARIAN CYST [None]
  - UTERINE DISORDER [None]
